FAERS Safety Report 9156060 (Version 2)
Quarter: 2013Q1

REPORT INFORMATION
  Report Type: Spontaneous
  Country: JP (occurrence: JP)
  Receive Date: 20130311
  Receipt Date: 20130313
  Transmission Date: 20140127
  Serious: Yes (Death, Other)
  Sender: FDA-Public Use
  Company Number: JP-B.I. PHARMACEUTICALS,INC./RIDGEFIELD-2013-BI-05849GD

PATIENT
  Age: 84 Year
  Sex: Female

DRUGS (2)
  1. PRADAXA [Suspect]
     Indication: ANTICOAGULANT THERAPY
  2. HEPARIN [Suspect]
     Indication: ANTICOAGULANT THERAPY
     Dosage: CONTINUOUS INFUSION

REACTIONS (7)
  - Hepatic neoplasm [Fatal]
  - Hyperammonaemia [Unknown]
  - Melaena [Unknown]
  - Rectal haemorrhage [Unknown]
  - Rectal cancer [Unknown]
  - Altered state of consciousness [Unknown]
  - Anaemia [Unknown]
